FAERS Safety Report 6171740-1 (Version None)
Quarter: 2009Q2

REPORT INFORMATION
  Report Type: 
  Country: None (occurrence: None)
  Receive Date: 20090427
  Receipt Date: 20090427
  Transmission Date: 20091009
  Serious: Yes (Hospitalization)
  Sender: FDA-Public Use
  Company Number: None

PATIENT
  Sex: Female

DRUGS (1)
  1. DIGOXIN [Suspect]
     Indication: CARDIAC DISORDER
     Dosage: 0.125 MG EVERY DAY PO, SEVERAL YEARS
     Route: 048

REACTIONS (3)
  - CARDIOACTIVE DRUG LEVEL INCREASED [None]
  - LETHARGY [None]
  - WEIGHT DECREASED [None]
